FAERS Safety Report 9417529 (Version 2)
Quarter: 2013Q4

REPORT INFORMATION
  Report Type: Spontaneous
  Country: US (occurrence: US)
  Receive Date: 20130724
  Receipt Date: 20131022
  Transmission Date: 20140711
  Serious: No
  Sender: FDA-Public Use
  Company Number: US-BRISTOL-MYERS SQUIBB COMPANY-19042738

PATIENT
  Age: 69 Year
  Sex: Female
  Weight: 52.61 kg

DRUGS (6)
  1. ELIQUIS [Suspect]
     Indication: ATRIAL FIBRILLATION
     Dates: start: 20130603, end: 20130608
  2. FLECAINIDE [Concomitant]
  3. DILTIAZEM HCL [Concomitant]
  4. ZETIA [Concomitant]
  5. CLONAZEPAM [Concomitant]
  6. HYDROCODONE [Concomitant]

REACTIONS (4)
  - Swelling face [Unknown]
  - Rash pruritic [Unknown]
  - Skin exfoliation [Unknown]
  - Memory impairment [Unknown]
